FAERS Safety Report 17735495 (Version 2)
Quarter: 2020Q2

REPORT INFORMATION
  Report Type: Spontaneous
  Country: US (occurrence: US)
  Receive Date: 20200501
  Receipt Date: 20200521
  Transmission Date: 20200714
  Serious: Yes (Other)
  Sender: FDA-Public Use
  Company Number: US-PFIZER INC-2020157228

PATIENT
  Age: 55 Year
  Sex: Female
  Weight: 74.84 kg

DRUGS (2)
  1. PREMPRO [Suspect]
     Active Substance: ESTROGENS, CONJUGATED\MEDROXYPROGESTERONE ACETATE
     Indication: HOT FLUSH
     Dosage: UNK
     Dates: start: 202001, end: 202001
  2. PREMPRO [Suspect]
     Active Substance: ESTROGENS, CONJUGATED\MEDROXYPROGESTERONE ACETATE
     Indication: NIGHT SWEATS

REACTIONS (4)
  - Abdominal distension [Not Recovered/Not Resolved]
  - Haemorrhage [Recovered/Resolved]
  - Weight increased [Not Recovered/Not Resolved]
  - Poor quality sleep [Unknown]

NARRATIVE: CASE EVENT DATE: 202001
